FAERS Safety Report 4779222-6 (Version None)
Quarter: 2005Q3

REPORT INFORMATION
  Report Type: 
  Country: None (occurrence: None)
  Receive Date: 20050923
  Receipt Date: 20050913
  Transmission Date: 20060218
  Serious: Yes (Hospitalization)
  Sender: FDA-Public Use
  Company Number: 2005BI008632

PATIENT
  Age: 65 Year
  Sex: Female

DRUGS (8)
  1. AVONEX [Suspect]
     Indication: MULTIPLE SCLEROSIS
     Dosage: 30 UG QW IM
     Route: 030
     Dates: start: 20040629
  2. AVONEX [Suspect]
     Indication: MULTIPLE SCLEROSIS
     Dosage: 15 UG QW IM
     Route: 030
     Dates: end: 20050101
  3. NEURONTIN [Concomitant]
  4. TEGRETOL [Concomitant]
  5. NORVASC [Concomitant]
  6. INDERAL [Concomitant]
  7. DITROPAN [Concomitant]
  8. ACYCLOVIR [Concomitant]

REACTIONS (2)
  - LOSS OF CONTROL OF LEGS [None]
  - URINARY TRACT INFECTION [None]
